FAERS Safety Report 24150800 (Version 2)
Quarter: 2024Q3

REPORT INFORMATION
  Report Type: Spontaneous
  Country: US (occurrence: US)
  Receive Date: 20240730
  Receipt Date: 20240810
  Transmission Date: 20241016
  Serious: Yes (Life-Threatening, Hospitalization)
  Sender: TEVA
  Company Number: US-TEVA-VS-3223188

PATIENT
  Age: 26 Year
  Sex: Male

DRUGS (1)
  1. OXYCODONE [Suspect]
     Active Substance: OXYCODONE
     Indication: Product used for unknown indication
     Dosage: INGESTED 40-50 TABLETS
     Route: 048

REACTIONS (13)
  - Intentional overdose [Unknown]
  - Respiratory acidosis [Recovering/Resolving]
  - Toxic leukoencephalopathy [Recovering/Resolving]
  - Acute kidney injury [Recovering/Resolving]
  - Respiratory failure [Recovering/Resolving]
  - Rhabdomyolysis [Recovering/Resolving]
  - Toxicity to various agents [Recovering/Resolving]
  - Quadriplegia [Recovering/Resolving]
  - Blindness cortical [Recovering/Resolving]
  - Cardio-respiratory arrest [Recovering/Resolving]
  - Pneumonia aspiration [Recovering/Resolving]
  - Anosognosia [Recovering/Resolving]
  - Confabulation [Recovering/Resolving]
